FAERS Safety Report 14374525 (Version 2)
Quarter: 2018Q1

REPORT INFORMATION
  Report Type: Spontaneous
  Country: AT (occurrence: AT)
  Receive Date: 20180111
  Receipt Date: 20180327
  Transmission Date: 20180509
  Serious: Yes (Other)
  Sender: FDA-Public Use
  Company Number: AT-ABBVIE-17P-009-2132526-00

PATIENT
  Age: 42 Year
  Sex: Male

DRUGS (28)
  1. CHLORAL HYDRATE [Suspect]
     Active Substance: CHLORAL HYDRATE
     Route: 065
     Dates: start: 20150321, end: 20150321
  2. JATROSOM [Suspect]
     Active Substance: TRANYLCYPROMINE SULFATE\TRIFLUOPERAZINE HYDROCHLORIDE
     Route: 065
     Dates: start: 20150414
  3. SUBSTITOL [Suspect]
     Active Substance: MORPHINE SULFATE
     Indication: SLEEP DISORDER
     Route: 065
     Dates: start: 2014
  4. SUBSTITOL [Suspect]
     Active Substance: MORPHINE SULFATE
     Route: 065
     Dates: start: 20150317, end: 20150317
  5. SUBSTITOL [Suspect]
     Active Substance: MORPHINE SULFATE
     Route: 065
     Dates: start: 20150318, end: 20150318
  6. NICORETTE [Suspect]
     Active Substance: NICOTINE
     Indication: PRODUCT USED FOR UNKNOWN INDICATION
     Route: 065
     Dates: start: 20150319, end: 20150413
  7. CHLORAL HYDRATE [Suspect]
     Active Substance: CHLORAL HYDRATE
     Route: 065
     Dates: start: 20150322, end: 20150322
  8. SEROQUEL [Suspect]
     Active Substance: QUETIAPINE FUMARATE
     Route: 065
     Dates: start: 20150318
  9. MIRTABENE [Suspect]
     Active Substance: MIRTAZAPINE
     Indication: SLEEP DISORDER
     Route: 065
     Dates: start: 20150409, end: 20150416
  10. DEPAKINE CRONO [Suspect]
     Active Substance: VALPROIC ACID
     Indication: SLEEP DISORDER
     Route: 048
     Dates: start: 2015, end: 20150316
  11. AURORIX [Suspect]
     Active Substance: MOCLOBEMIDE
     Indication: SLEEP DISORDER
     Route: 065
     Dates: start: 2015, end: 20150322
  12. SUBSTITOL [Suspect]
     Active Substance: MORPHINE SULFATE
     Route: 065
     Dates: start: 20150319
  13. SEROQUEL [Suspect]
     Active Substance: QUETIAPINE FUMARATE
     Indication: SLEEP DISORDER
     Route: 065
     Dates: start: 20150317, end: 20150317
  14. ZOLDEM [Suspect]
     Active Substance: ZOLPIDEM TARTRATE
     Route: 065
     Dates: start: 20150323, end: 20150329
  15. TRITTICO [Suspect]
     Active Substance: TRAZODONE HYDROCHLORIDE
     Route: 065
     Dates: start: 20150317
  16. JATROSOM [Suspect]
     Active Substance: TRANYLCYPROMINE SULFATE\TRIFLUOPERAZINE HYDROCHLORIDE
     Indication: SLEEP DISORDER
     Route: 065
     Dates: start: 20150323, end: 20150406
  17. PRAXITEN [Concomitant]
     Active Substance: OXAZEPAM
     Indication: PRODUCT USED FOR UNKNOWN INDICATION
     Route: 065
     Dates: start: 2015, end: 20150316
  18. ZOLDEM [Suspect]
     Active Substance: ZOLPIDEM TARTRATE
     Indication: SLEEP DISORDER
     Route: 065
     Dates: start: 20150317, end: 20150322
  19. LYRICA [Suspect]
     Active Substance: PREGABALIN
     Indication: SLEEP DISORDER
     Route: 065
     Dates: start: 20150317, end: 20150317
  20. LYRICA [Suspect]
     Active Substance: PREGABALIN
     Route: 065
     Dates: start: 20150319
  21. CHLORAL HYDRATE [Suspect]
     Active Substance: CHLORAL HYDRATE
     Indication: SLEEP DISORDER
     Route: 065
     Dates: start: 20150320, end: 20150320
  22. PANTOLOC [Suspect]
     Active Substance: PANTOPRAZOLE SODIUM
     Indication: SLEEP DISORDER
     Route: 065
     Dates: start: 2015
  23. DOMINAL (PROTHIPENDYL HYDROCHLORIDE) [Concomitant]
     Active Substance: PROTHIPENDYL HYDROCHLORIDE
     Indication: SLEEP DISORDER
     Route: 065
     Dates: end: 20150413
  24. TRITTICO [Suspect]
     Active Substance: TRAZODONE HYDROCHLORIDE
     Indication: SLEEP DISORDER
     Route: 065
     Dates: start: 2015, end: 20150316
  25. LYRICA [Suspect]
     Active Substance: PREGABALIN
     Route: 065
     Dates: start: 20150318, end: 20150318
  26. JATROSOM [Suspect]
     Active Substance: TRANYLCYPROMINE SULFATE\TRIFLUOPERAZINE HYDROCHLORIDE
     Route: 065
     Dates: start: 20150407, end: 20150413
  27. FERROGRADUMET [Suspect]
     Active Substance: FERROUS SULFATE
     Indication: SLEEP DISORDER
     Route: 065
     Dates: start: 2015
  28. NICORETTE [Suspect]
     Active Substance: NICOTINE
     Route: 065
     Dates: start: 20150321

REACTIONS (7)
  - Pollakiuria [Unknown]
  - Nervousness [Unknown]
  - Oedema peripheral [Recovered/Resolved]
  - Disorientation [Unknown]
  - Restlessness [Unknown]
  - Depressed mood [Unknown]
  - Confusional state [Recovered/Resolved]

NARRATIVE: CASE EVENT DATE: 2015
